FAERS Safety Report 8334642-8 (Version None)
Quarter: 2012Q2

REPORT INFORMATION
  Report Type: 
  Country: None (occurrence: None)
  Receive Date: 20120503
  Receipt Date: 20120418
  Transmission Date: 20120825
  Serious: Yes (Hospitalization, Other)
  Sender: FDA-Public Use
  Company Number: CN-JNJFOC-20120413580

PATIENT
  Sex: Male
  Weight: 65 kg

DRUGS (2)
  1. TRAMADOL HYDROCHLORIDE AND ACETAMINOPHEN [Suspect]
     Indication: BACK PAIN
     Dosage: 1 TABLET ONCE A DAY
     Route: 048
     Dates: start: 20111006, end: 20111006
  2. AN UNKNOWN MEDICATION [Suspect]
     Indication: BACK PAIN
     Route: 065
     Dates: start: 20111006

REACTIONS (9)
  - PALPITATIONS [None]
  - ERECTILE DYSFUNCTION [None]
  - FATIGUE [None]
  - TIC [None]
  - DIZZINESS [None]
  - NAUSEA [None]
  - CHEST DISCOMFORT [None]
  - VOMITING [None]
  - CONVULSION [None]
